FAERS Safety Report 13467362 (Version 3)
Quarter: 2017Q2

REPORT INFORMATION
  Report Type: Spontaneous
  Country: JP (occurrence: JP)
  Receive Date: 20170421
  Receipt Date: 20170627
  Transmission Date: 20170830
  Serious: Yes (Hospitalization, Other)
  Sender: FDA-Public Use
  Company Number: JP-009507513-1704JPN001576J

PATIENT
  Age: 87 Year
  Sex: Female

DRUGS (7)
  1. LENDORMIN [Concomitant]
     Active Substance: BROTIZOLAM
     Dosage: 1 DF, UNK
     Route: 048
     Dates: start: 200408
  2. ZETIA [Suspect]
     Active Substance: EZETIMIBE
     Indication: DYSLIPIDAEMIA
     Dosage: 10 MG, QD
     Route: 048
     Dates: start: 20170309, end: 20170412
  3. MUCOSTA [Concomitant]
     Active Substance: REBAMIPIDE
     Dosage: UNK
     Route: 048
     Dates: start: 201704
  4. SELBEX [Concomitant]
     Active Substance: TEPRENONE
     Dosage: 1.0 G, BID
     Route: 048
     Dates: start: 1994
  5. HERBESSER [Concomitant]
     Active Substance: DILTIAZEM HYDROCHLORIDE
     Dosage: 30 MG, QD
     Route: 048
     Dates: start: 201502
  6. AZILVA [Concomitant]
     Active Substance: AZILSARTAN KAMEDOXOMIL
     Dosage: 10 MG, QD
     Route: 048
     Dates: start: 201502
  7. NORVASC [Concomitant]
     Active Substance: AMLODIPINE BESYLATE
     Dosage: 5 MG, QD
     Route: 048
     Dates: start: 201502

REACTIONS (4)
  - Duodenal ulcer haemorrhage [Recovering/Resolving]
  - Nausea [Unknown]
  - Helicobacter infection [Unknown]
  - Gastric ulcer haemorrhage [Recovering/Resolving]

NARRATIVE: CASE EVENT DATE: 20170309
